FAERS Safety Report 9312258 (Version 2)
Quarter: 2014Q3

REPORT INFORMATION
  Report Type: Report from Study
  Country: MX (occurrence: MX)
  Receive Date: 20130528
  Receipt Date: 20140714
  Transmission Date: 20150326
  Serious: No
  Sender: FDA-Public Use
  Company Number: PHHY2013MX053228

PATIENT
  Age: 86 Year
  Sex: Female

DRUGS (2)
  1. DIOVAN [Suspect]
     Active Substance: VALSARTAN
     Indication: OFF LABEL USE
  2. DIOVAN [Suspect]
     Active Substance: VALSARTAN
     Indication: BLOOD GLUCOSE INCREASED
     Dosage: 160 MG, UNK
     Route: 048

REACTIONS (1)
  - Blood glucose increased [Recovered/Resolved]
